FAERS Safety Report 4530048-8 (Version None)
Quarter: 2004Q4

REPORT INFORMATION
  Report Type: 
  Country: None (occurrence: None)
  Receive Date: 20041215
  Receipt Date: 20041215
  Transmission Date: 20050328
  Serious: Yes (Life-Threatening, Disabling)
  Sender: FDA-Public Use
  Company Number: None

PATIENT
  Sex: Female
  Weight: 54.4316 kg

DRUGS (2)
  1. ZOLOFT [Suspect]
     Indication: OBSESSIVE-COMPULSIVE DISORDER
     Dosage: 200MG   DAY   ORAL
     Route: 048
     Dates: start: 20020401, end: 20040318
  2. ZOLOFT [Suspect]
     Indication: POST-TRAUMATIC STRESS DISORDER
     Dosage: 200MG   DAY   ORAL
     Route: 048
     Dates: start: 20020401, end: 20040318

REACTIONS (15)
  - ACNE [None]
  - ARRHYTHMIA [None]
  - ASTHENOPIA [None]
  - BRUXISM [None]
  - CLUMSINESS [None]
  - DYSKINESIA [None]
  - FEELING ABNORMAL [None]
  - HEART RATE INCREASED [None]
  - LOOSE STOOLS [None]
  - MEDICATION ERROR [None]
  - MIGRAINE [None]
  - MUSCLE TWITCHING [None]
  - SLEEP DISORDER [None]
  - SUICIDAL IDEATION [None]
  - WEIGHT INCREASED [None]
